FAERS Safety Report 18163675 (Version 2)
Quarter: 2020Q3

REPORT INFORMATION
  Report Type: Spontaneous
  Country: US (occurrence: US)
  Receive Date: 20200818
  Receipt Date: 20200916
  Transmission Date: 20201103
  Serious: No
  Sender: FDA-Public Use
  Company Number: US-ALEXION-A202010911

PATIENT
  Age: 13 Year
  Sex: Female
  Weight: 45 kg

DRUGS (1)
  1. SOLIRIS [Suspect]
     Active Substance: ECULIZUMAB
     Indication: MYASTHENIA GRAVIS
     Dosage: UNK
     Route: 065

REACTIONS (3)
  - Activated partial thromboplastin time prolonged [Unknown]
  - Prothrombin time abnormal [Unknown]
  - Product use issue [Unknown]
